FAERS Safety Report 4560573-5 (Version None)
Quarter: 2005Q1

REPORT INFORMATION
  Report Type: 
  Country: None (occurrence: None)
  Receive Date: 20050125
  Receipt Date: 20041230
  Transmission Date: 20050727
  Serious: Yes (Hospitalization)
  Sender: FDA-Public Use
  Company Number: FR-BRISTOL-MYERS SQUIBB COMPANY-12809919

PATIENT
  Age: 84 Year
  Sex: Male

DRUGS (8)
  1. APROVEL [Suspect]
     Route: 048
     Dates: start: 20040101, end: 20040410
  2. BUFLOMEDIL HCL [Suspect]
     Route: 048
     Dates: start: 20010101, end: 20040410
  3. FLUINDIONE [Suspect]
  4. LESCOL [Suspect]
     Route: 048
     Dates: start: 20010101, end: 20040410
  5. MOLSIDOMINE [Suspect]
     Route: 048
     Dates: start: 20010101, end: 20040410
  6. OGAST [Suspect]
     Route: 048
     Dates: start: 20010101, end: 20040410
  7. PLAVIX [Suspect]
     Route: 048
     Dates: start: 20010101, end: 20040410
  8. PREVISCAN [Concomitant]
     Indication: ATRIAL FIBRILLATION
     Dosage: 20MG, 1 TO 1.25 TABLET DAILY
     Dates: start: 20040402, end: 20040404

REACTIONS (2)
  - ERYTHEMA [None]
  - RASH MACULO-PAPULAR [None]
